FAERS Safety Report 16162245 (Version 4)
Quarter: 2019Q2

REPORT INFORMATION
  Report Type: Spontaneous
  Country: JP (occurrence: JP)
  Receive Date: 20190405
  Receipt Date: 20190503
  Transmission Date: 20190711
  Serious: Yes (Death, Life-Threatening, Other)
  Sender: FDA-Public Use
  Company Number: JP-ROCHE-2295609

PATIENT
  Age: 77 Year
  Sex: Female
  Weight: 39 kg

DRUGS (2)
  1. PREDONINE [Suspect]
     Active Substance: PREDNISOLONE
     Indication: PRODUCT USED FOR UNKNOWN INDICATION
     Route: 048
     Dates: start: 20171006, end: 20180706
  2. ACTEMRA [Suspect]
     Active Substance: TOCILIZUMAB
     Indication: TEMPORAL ARTERITIS
     Dosage: DOSAGE IS UNCERTAIN.
     Route: 058
     Dates: start: 20180209, end: 20180706

REACTIONS (7)
  - Adrenal gland cancer [Recovered/Resolved with Sequelae]
  - Tumour invasion [Fatal]
  - Duodenal perforation [Fatal]
  - Septic shock [Fatal]
  - Trousseau^s syndrome [Unknown]
  - Cerebral infarction [Unknown]
  - Peritonitis [Fatal]

NARRATIVE: CASE EVENT DATE: 20180702
